FAERS Safety Report 4686734-2 (Version None)
Quarter: 2005Q2

REPORT INFORMATION
  Report Type: 
  Country: None (occurrence: None)
  Receive Date: 20050608
  Receipt Date: 20050526
  Transmission Date: 20051028
  Serious: Yes (Other)
  Sender: FDA-Public Use
  Company Number: 2005078873

PATIENT
  Age: 16 Year
  Sex: Female
  Weight: 54 kg

DRUGS (1)
  1. DEPO-PROVERA [Suspect]
     Indication: CONTRACEPTION
     Dosage: 150 MG (150 MG, SINGLEINJECTION), INTRAMUSCULAR
     Route: 030
     Dates: start: 19940912, end: 19940912

REACTIONS (2)
  - INJECTION SITE ABSCESS [None]
  - METRORRHAGIA [None]
